FAERS Safety Report 8399446-9 (Version None)
Quarter: 2012Q2

REPORT INFORMATION
  Report Type: 
  Country: None (occurrence: None)
  Receive Date: 20120531
  Receipt Date: 20120530
  Transmission Date: 20120825
  Serious: Yes (Other)
  Sender: FDA-Public Use
  Company Number: US-GLAXOSMITHKLINE-A0803990A

PATIENT
  Age: 64 Year
  Sex: Female

DRUGS (7)
  1. TRILIPIX [Concomitant]
  2. BONIVA [Concomitant]
  3. OMEPRAZOLE [Concomitant]
  4. VITAMIN [Concomitant]
  5. ALLI [Suspect]
     Indication: WEIGHT LOSS DIET
     Route: 048
     Dates: start: 20080301, end: 20120401
  6. EVISTA [Concomitant]
  7. LIPITOR [Suspect]

REACTIONS (15)
  - ASPARTATE AMINOTRANSFERASE INCREASED [None]
  - TREATMENT NONCOMPLIANCE [None]
  - PAIN [None]
  - DIVERTICULITIS [None]
  - HEPATIC ENZYME INCREASED [None]
  - ABDOMINAL PAIN [None]
  - INVESTIGATION [None]
  - DIVERTICULUM [None]
  - RECTAL DISCHARGE [None]
  - ABDOMINAL PAIN UPPER [None]
  - ALANINE AMINOTRANSFERASE INCREASED [None]
  - DEFAECATION URGENCY [None]
  - ULTRASOUND SCAN [None]
  - CONDITION AGGRAVATED [None]
  - CONSTIPATION [None]
